FAERS Safety Report 23322377 (Version 1)
Quarter: 2023Q4

REPORT INFORMATION
  Report Type: Report from Study
  Country: EG (occurrence: EG)
  Receive Date: 20231220
  Receipt Date: 20231220
  Transmission Date: 20240110
  Serious: Yes (Other)
  Sender: FDA-Public Use
  Company Number: EG-SANDOZ-SDZ2023EG070518

PATIENT
  Age: 60 Year
  Sex: Female

DRUGS (2)
  1. HYRIMOZ [Suspect]
     Active Substance: ADALIMUMAB-ADAZ
     Indication: Psoriatic arthropathy
     Dosage: 40 MG EVERY OTHER WEEK (FORMULATION: PRE-FILLED SYRINGE)
     Route: 058
     Dates: end: 202309
  2. METHOTREXATE [Concomitant]
     Active Substance: METHOTREXATE
     Indication: Psoriatic arthropathy
     Dosage: 0.8 ML THEN HER HCP DECREASED THE DOSE TO 0.6 ML AFTER INCREASE OF LIVER FUNCTION TESTS (EVENT 2)
     Route: 058
     Dates: start: 202302, end: 20231014

REACTIONS (2)
  - Liver function test increased [Unknown]
  - Pain [Unknown]

NARRATIVE: CASE EVENT DATE: 20231015
